FAERS Safety Report 17256509 (Version 1)
Quarter: 2020Q1

REPORT INFORMATION
  Report Type: Spontaneous
  Country: ES (occurrence: ES)
  Receive Date: 20200110
  Receipt Date: 20200110
  Transmission Date: 20200409
  Serious: Yes (Hospitalization)
  Sender: FDA-Public Use
  Company Number: ES-ACCORD-169265

PATIENT
  Age: 27 Month
  Sex: Male

DRUGS (2)
  1. TACROLIMUS. [Suspect]
     Active Substance: TACROLIMUS
     Indication: LIVER TRANSPLANT
     Dosage: SP
     Route: 048
     Dates: start: 20180511, end: 20180924
  2. TACROLIMUS. [Suspect]
     Active Substance: TACROLIMUS
     Indication: LIVER TRANSPLANT
     Dosage: SP
     Route: 048
     Dates: start: 20180925, end: 20181214

REACTIONS (1)
  - Kaposi^s sarcoma [Recovering/Resolving]

NARRATIVE: CASE EVENT DATE: 20181214
